FAERS Safety Report 10268964 (Version 1)
Quarter: 2014Q2

REPORT INFORMATION
  Report Type: Spontaneous
  Country: JP (occurrence: JP)
  Receive Date: 20140630
  Receipt Date: 20140630
  Transmission Date: 20141212
  Serious: Yes (Other)
  Sender: FDA-Public Use
  Company Number: JP-WATSON-2014-13905

PATIENT
  Age: 56 Year
  Sex: Female

DRUGS (2)
  1. TACROLIMUS (UNKNOWN) [Suspect]
     Indication: ALLOGENIC BONE MARROW TRANSPLANTATION THERAPY
     Dosage: CONTINUOUS INTRAVENOUS ADMINISTRATION
     Route: 042
  2. CYCLOPHOSPHAMIDE (UNKNOWN) [Suspect]
     Indication: ALLOGENIC BONE MARROW TRANSPLANTATION THERAPY
     Dosage: 60 MG/KG, UNKNOWN
     Route: 065

REACTIONS (4)
  - Cerebral infarction [Recovered/Resolved]
  - Cerebral vasoconstriction [Recovered/Resolved]
  - Posterior reversible encephalopathy syndrome [Recovered/Resolved]
  - Tension headache [Unknown]
